FAERS Safety Report 7611703-X (Version None)
Quarter: 2011Q2

REPORT INFORMATION
  Report Type: 
  Country: None (occurrence: None)
  Receive Date: 20110630
  Receipt Date: 20110614
  Transmission Date: 20111010
  Serious: Yes (Other)
  Sender: FDA-Public Use
  Company Number: 2011029012

PATIENT
  Sex: Female
  Weight: 90 kg

DRUGS (16)
  1. MAGNESIUM OXIDE (MAGNESIUM OXIDE) [Concomitant]
  2. XANAX [Concomitant]
  3. COMPAZNE (PROCHLORPERAZINE EDISYLATE) [Concomitant]
  4. ADAVIR DOSC 250/50 (SERETIDE /01420901) [Concomitant]
  5. ASPIRIN [Concomitant]
  6. RANITDINE (RANITIDINE) [Concomitant]
  7. PROZAC [Concomitant]
  8. DIOVAN [Concomitant]
  9. ASTEPRO 0.15% SPRAY (AZELASTINE) [Concomitant]
  10. RHINOCORT NOSE SPRAY (BUDESONIDE) [Concomitant]
  11. NORVASC [Concomitant]
  12. PRAVACHOL [Concomitant]
  13. SINGULAIR [Concomitant]
  14. VIVAGLOBIN [Suspect]
     Indication: IMMUNODEFICIENCY COMMON VARIABLE
     Dosage: 10.56 G 1X/WEEK, INFUSED 66ML VIA 5-6 SITES SUBCUTANEOUS
     Route: 058
     Dates: start: 20100127, end: 20110317
  15. VIVAGLOBIN [Suspect]
     Indication: LYMPHOPENIA
     Dosage: 10.56 G 1X/WEEK, INFUSED 66ML VIA 5-6 SITES SUBCUTANEOUS
     Route: 058
     Dates: start: 20100127, end: 20110317
  16. SYNTHROID [Concomitant]

REACTIONS (8)
  - ASTHENIA [None]
  - FATIGUE [None]
  - WEIGHT INCREASED [None]
  - INCREASED APPETITE [None]
  - OPTIC NEURITIS [None]
  - NEUROMYELITIS OPTICA [None]
  - BLOOD PRESSURE INCREASED [None]
  - BLOOD IMMUNOGLOBULIN E INCREASED [None]
